FAERS Safety Report 13570604 (Version 1)
Quarter: 2017Q2

REPORT INFORMATION
  Report Type: Spontaneous
  Country: CA (occurrence: CA)
  Receive Date: 20170523
  Receipt Date: 20170523
  Transmission Date: 20170830
  Serious: Yes (Hospitalization, Other)
  Sender: FDA-Public Use
  Company Number: CA-TEVA-770202ACC

PATIENT
  Weight: 59 kg

DRUGS (6)
  1. CALCIUM + VITAMIN D [Concomitant]
     Active Substance: CALCIUM\VITAMIN D
  2. NITRAZEPAM [Concomitant]
     Active Substance: NITRAZEPAM
  3. NOVO-DIVALPROEX [Suspect]
     Active Substance: DIVALPROEX SODIUM
     Indication: EPILEPSY
     Route: 048
  4. MELATONIN [Concomitant]
     Active Substance: MELATONIN
  5. CLOBAZAM [Concomitant]
     Active Substance: CLOBAZAM
  6. LAMOTRIGINE. [Concomitant]
     Active Substance: LAMOTRIGINE

REACTIONS (5)
  - Abnormal behaviour [Unknown]
  - Intentional self-injury [Unknown]
  - Sleep disorder [Unknown]
  - Mood swings [Unknown]
  - Crying [Unknown]
